FAERS Safety Report 5041325-9 (Version None)
Quarter: 2006Q2

REPORT INFORMATION
  Report Type: 
  Country: None (occurrence: None)
  Receive Date: 20060626
  Receipt Date: 20060615
  Transmission Date: 20061013
  Serious: Yes (Hospitalization, Other)
  Sender: FDA-Public Use
  Company Number: 2006-05-1882

PATIENT
  Age: 49 Year
  Sex: Female
  Weight: 106.1417 kg

DRUGS (4)
  1. PEG-INTRON [Suspect]
     Indication: HEPATITIS C
     Dosage: SUBCUTANEOUS
     Route: 058
     Dates: start: 20060420
  2. RIBAVIRIN [Suspect]
     Indication: HEPATITIS C
     Dosage: ORAL
     Route: 048
     Dates: start: 20060420
  3. BACLOFEN [Concomitant]
  4. HYDROCODONE BITARTRATE/ACETAMINOPHEN TABLETS [Concomitant]

REACTIONS (21)
  - ASTHENIA [None]
  - BACK PAIN [None]
  - CHEST PAIN [None]
  - CRYING [None]
  - DEPRESSION [None]
  - DYSPEPSIA [None]
  - DYSPNOEA EXERTIONAL [None]
  - FATIGUE [None]
  - HERNIA [None]
  - HYPERTENSIVE CARDIOMEGALY [None]
  - INJECTION SITE ERYTHEMA [None]
  - INJECTION SITE WARMTH [None]
  - MALAISE [None]
  - NAUSEA [None]
  - PAIN IN EXTREMITY [None]
  - PYREXIA [None]
  - TOOTH DISORDER [None]
  - TOOTH EXTRACTION [None]
  - ULCER [None]
  - VOMITING [None]
  - WEIGHT DECREASED [None]
